FAERS Safety Report 4506882-7 (Version None)
Quarter: 2004Q4

REPORT INFORMATION
  Report Type: 
  Country: None (occurrence: None)
  Receive Date: 20041117
  Receipt Date: 20041105
  Transmission Date: 20050328
  Serious: Yes (Death)
  Sender: FDA-Public Use
  Company Number: 2004090156

PATIENT
  Age: 82 Year
  Sex: Female

DRUGS (11)
  1. FRAGMIN [Suspect]
     Indication: PULMONARY EMBOLISM
     Dosage: 15000 I.U. (7500 I.U., 2 IN 1 D), SUBCUTANEOUS
     Route: 058
     Dates: start: 20040914, end: 20040922
  2. ISOSORBIDE MONONITRATE [Concomitant]
  3. ESCITALOPRAM (ESCITALOPRAM) [Concomitant]
  4. IPRATROPIUM BROMIDE [Concomitant]
  5. ALIMEMAZINE TARTRATE (ALIMEMAZINE TARTRATE) [Concomitant]
  6. PANADELINE CO (CODEINE PHOSPHATE, PARACETAMOL) [Concomitant]
  7. METOPROLOL SUCCINATE (METROPROLOL SUCCINATE) [Concomitant]
  8. CEFOTAXIME SODIUM [Concomitant]
  9. FUROSEMIDE [Concomitant]
  10. SALBUTAMOL (SALBUTAMOL) [Concomitant]
  11. TOLTERODINE TARTRATE [Concomitant]

REACTIONS (1)
  - PLEURAL HAEMORRHAGE [None]
